FAERS Safety Report 9059634 (Version 1)
Quarter: 2013Q1

REPORT INFORMATION
  Report Type: Spontaneous
  Country: US (occurrence: None)
  Receive Date: 20130205
  Receipt Date: 20130205
  Transmission Date: 20140127
  Serious: Yes (Hospitalization)
  Sender: FDA-Public Use
  Company Number: None

PATIENT
  Sex: Female
  Weight: 14.56 kg

DRUGS (5)
  1. LEVETIRACETAM [Suspect]
     Dosage: 2 DOSES
     Route: 040
     Dates: start: 20130201, end: 20130201
  2. LEVETIRACETAM [Suspect]
     Dosage: 2 DOSES
     Route: 048
     Dates: start: 20130202, end: 20130202
  3. LORAZEPAM INJECTION [Concomitant]
  4. FOSPHENYTOIN INJECTION [Concomitant]
  5. ACETAMINOPHEN [Concomitant]

REACTIONS (5)
  - Screaming [None]
  - Abnormal behaviour [None]
  - Somnolence [None]
  - Tremor [None]
  - Gait disturbance [None]
